FAERS Safety Report 21938505 (Version 1)
Quarter: 2023Q1

REPORT INFORMATION
  Report Type: Spontaneous
  Country: DE (occurrence: DE)
  Receive Date: 20230201
  Receipt Date: 20230201
  Transmission Date: 20230418
  Serious: Yes (Other)
  Sender: FDA-Public Use
  Company Number: DE-BoehringerIngelheim-2023-BI-214826

PATIENT
  Age: 68 Year
  Sex: Male
  Weight: 71 kg

DRUGS (14)
  1. NINTEDANIB [Suspect]
     Active Substance: NINTEDANIB
     Indication: Systemic scleroderma
     Dates: start: 202205, end: 202206
  2. NINTEDANIB [Suspect]
     Active Substance: NINTEDANIB
     Dates: start: 202206, end: 202207
  3. NINTEDANIB [Suspect]
     Active Substance: NINTEDANIB
     Dates: start: 202209, end: 202210
  4. NINTEDANIB [Suspect]
     Active Substance: NINTEDANIB
     Dates: start: 202210
  5. NINTEDANIB [Suspect]
     Active Substance: NINTEDANIB
  6. NINTEDANIB [Suspect]
     Active Substance: NINTEDANIB
  7. CORTISONE ACETATE [Concomitant]
     Active Substance: CORTISONE ACETATE
     Indication: Product used for unknown indication
     Dosage: HEAVY-DOSE CORTISONE
  8. METHOTREXATE [Concomitant]
     Active Substance: METHOTREXATE
     Indication: Product used for unknown indication
     Route: 048
     Dates: start: 202110, end: 202111
  9. METHOTREXATE [Concomitant]
     Active Substance: METHOTREXATE
     Route: 048
     Dates: start: 202111, end: 202112
  10. METHOTREXATE [Concomitant]
     Active Substance: METHOTREXATE
     Route: 058
     Dates: start: 202112, end: 202205
  11. NIFEDIPINE [Concomitant]
     Active Substance: NIFEDIPINE
     Indication: Product used for unknown indication
     Dosage: IMPACT THERAPY
  12. CYCLOPHOSPHAMIDE [Concomitant]
     Active Substance: CYCLOPHOSPHAMIDE
     Indication: Product used for unknown indication
     Route: 042
     Dates: start: 202205, end: 202210
  13. TOCILIZUMAB [Concomitant]
     Active Substance: TOCILIZUMAB
     Indication: Product used for unknown indication
     Dosage: 8 MG/KG KG ALL 4 WEEKS
     Route: 042
     Dates: start: 20221222, end: 20221222
  14. TOCILIZUMAB [Concomitant]
     Active Substance: TOCILIZUMAB
     Dosage: 8 MG/KG KG ALL 4 WEEKS
     Route: 042
     Dates: start: 20230120, end: 20230120

REACTIONS (4)
  - Idiopathic pulmonary fibrosis [Unknown]
  - Nausea [Unknown]
  - Diarrhoea [Recovered/Resolved]
  - Diarrhoea [Unknown]

NARRATIVE: CASE EVENT DATE: 20220701
